FAERS Safety Report 24893722 (Version 1)
Quarter: 2025Q1

REPORT INFORMATION
  Report Type: Spontaneous
  Country: US (occurrence: US)
  Receive Date: 20250128
  Receipt Date: 20250128
  Transmission Date: 20250409
  Serious: No
  Sender: TAKEDA
  Company Number: US-TAKEDA-2025TUS007661

PATIENT
  Sex: Male
  Weight: 94 kg

DRUGS (2)
  1. VYVANSE [Suspect]
     Active Substance: LISDEXAMFETAMINE DIMESYLATE
     Indication: Autism spectrum disorder
     Dosage: 60 MILLIGRAM, QD
  2. LISDEXAMFETAMINE DIMESYLATE [Suspect]
     Active Substance: LISDEXAMFETAMINE DIMESYLATE
     Indication: Autism spectrum disorder
     Dosage: 60 MILLIGRAM, QD

REACTIONS (5)
  - Off label use [Unknown]
  - Product use issue [Unknown]
  - Product availability issue [Unknown]
  - Inability to afford medication [Unknown]
  - Insurance issue [Unknown]
